FAERS Safety Report 25491944 (Version 1)
Quarter: 2025Q2

REPORT INFORMATION
  Report Type: Report from Study
  Country: MX (occurrence: MX)
  Receive Date: 20250630
  Receipt Date: 20250630
  Transmission Date: 20250716
  Serious: Yes (Hospitalization, Other)
  Sender: NOVO NORDISK
  Company Number: MX-NOVOPROD-1462192

PATIENT
  Age: 49 Year
  Sex: Male
  Weight: 97 kg

DRUGS (1)
  1. WEGOVY [Suspect]
     Active Substance: SEMAGLUTIDE
     Indication: Weight control
     Dosage: 0.5 MG, QW
     Route: 058

REACTIONS (9)
  - Abdominal distension [Recovered/Resolved]
  - Overdose [Unknown]
  - Device malfunction [Unknown]
  - Device leakage [Unknown]
  - Inflammation [Unknown]
  - Fatigue [Recovered/Resolved]
  - Eructation [Recovered/Resolved]
  - Flatulence [Recovered/Resolved]
  - Increased appetite [Recovered/Resolved]

NARRATIVE: CASE EVENT DATE: 20250602
